FAERS Safety Report 8429810-0 (Version None)
Quarter: 2012Q2

REPORT INFORMATION
  Report Type: 
  Country: None (occurrence: None)
  Receive Date: 20120523
  Receipt Date: 20110421
  Transmission Date: 20120825
  Serious: Yes (Other)
  Sender: FDA-Public Use
  Company Number: 2011028469

PATIENT
  Age: 72 Year
  Sex: Male
  Weight: 88.905 kg

DRUGS (25)
  1. HIZENTRA [Suspect]
  2. VITAMIN B12 [Concomitant]
  3. NEXIUM [Concomitant]
  4. HIZENTRA [Suspect]
     Indication: IMMUNODEFICIENCY COMMON VARIABLE
     Dosage: SEE IMAGE, SUBCUTANEOUS
     Route: 058
     Dates: start: 20110329
  5. HIZENTRA [Suspect]
     Indication: IMMUNODEFICIENCY COMMON VARIABLE
     Dosage: SEE IMAGE, SUBCUTANEOUS
     Route: 058
     Dates: start: 20110315
  6. HIZENTRA [Suspect]
     Indication: IMMUNODEFICIENCY COMMON VARIABLE
     Dosage: SEE IMAGE, SUBCUTANEOUS
     Route: 058
     Dates: start: 20110329
  7. HIZENTRA [Suspect]
     Indication: IMMUNODEFICIENCY COMMON VARIABLE
     Dosage: SEE IMAGE, SUBCUTANEOUS
     Route: 058
     Dates: start: 20120313, end: 20120313
  8. HIZENTRA [Suspect]
     Indication: IMMUNODEFICIENCY COMMON VARIABLE
     Dosage: SEE IMAGE, SUBCUTANEOUS
     Route: 058
     Dates: start: 20110329
  9. HIZENTRA [Suspect]
     Indication: IMMUNODEFICIENCY COMMON VARIABLE
     Dosage: SEE IMAGE, SUBCUTANEOUS
     Route: 058
     Dates: start: 20120313, end: 20120313
  10. HIZENTRA [Suspect]
     Indication: IMMUNODEFICIENCY COMMON VARIABLE
     Dosage: SEE IMAGE, SUBCUTANEOUS
     Route: 058
     Dates: start: 20120313, end: 20120313
  11. GABAPENTIN [Concomitant]
  12. HIZENTRA [Suspect]
  13. HIZENTRA [Suspect]
  14. DIPHENHYDRAMINE HCL [Concomitant]
  15. LMX (ANESTHETICS, LOCAL) [Concomitant]
  16. HIZENTRA [Suspect]
  17. LIPITOR [Concomitant]
  18. CYMBALTA [Concomitant]
  19. ASPIRIN [Concomitant]
  20. PRAVASTATIN [Concomitant]
  21. EPINEPHRINE [Concomitant]
  22. HIZENTRA [Suspect]
  23. OMEPRAZOLE [Concomitant]
  24. MULTI-VITAMIN [Concomitant]
  25. METFORMIN HCL [Concomitant]

REACTIONS (4)
  - BLOOD ALKALINE PHOSPHATASE INCREASED [None]
  - ALANINE AMINOTRANSFERASE INCREASED [None]
  - LIVER FUNCTION TEST ABNORMAL [None]
  - ASPARTATE AMINOTRANSFERASE INCREASED [None]
